FAERS Safety Report 16662124 (Version 2)
Quarter: 2019Q3

REPORT INFORMATION
  Report Type: Report from Study
  Country: BR (occurrence: BR)
  Receive Date: 20190802
  Receipt Date: 20190802
  Transmission Date: 20191004
  Serious: Yes (Life-Threatening, Other)
  Sender: FDA-Public Use
  Company Number: PHHY2017BR159847

PATIENT
  Sex: Female
  Weight: 105 kg

DRUGS (7)
  1. XOLAIR [Suspect]
     Active Substance: OMALIZUMAB
     Indication: CHRONIC SPONTANEOUS URTICARIA
     Dosage: 2 DF, QMO (300 MG)
     Route: 058
     Dates: start: 20170718
  2. XOLAIR [Suspect]
     Active Substance: OMALIZUMAB
     Dosage: 2 DF, QMO (300 MG)
     Route: 058
     Dates: start: 20170818
  3. LORATADINE. [Suspect]
     Active Substance: LORATADINE
     Indication: PRODUCT USED FOR UNKNOWN INDICATION
     Route: 065
  4. PHENERGAN [Suspect]
     Active Substance: PROMETHAZINE HYDROCHLORIDE
     Indication: PRODUCT USED FOR UNKNOWN INDICATION
     Route: 065
  5. XOLAIR [Suspect]
     Active Substance: OMALIZUMAB
     Dosage: 2 DF, QMO (300 MG)
     Route: 058
     Dates: start: 20170918
  6. CORTISONE [Suspect]
     Active Substance: CORTISONE
     Indication: PRODUCT USED FOR UNKNOWN INDICATION
     Dosage: UNK
     Route: 065
  7. CICLOSPORIN [Suspect]
     Active Substance: CYCLOSPORINE
     Indication: HYPERSENSITIVITY
     Route: 065

REACTIONS (28)
  - Skin burning sensation [Unknown]
  - Feeling cold [Unknown]
  - Urticaria [Not Recovered/Not Resolved]
  - Feeling of despair [Unknown]
  - Oedema [Unknown]
  - Crying [Unknown]
  - Weight increased [Unknown]
  - Pruritus [Unknown]
  - Chills [Unknown]
  - Skin irritation [Unknown]
  - Dysuria [Unknown]
  - Dyspnoea [Unknown]
  - Insomnia [Unknown]
  - Depression [Unknown]
  - Mental disorder [Unknown]
  - Renal impairment [Unknown]
  - Laryngospasm [Unknown]
  - Deformity [Unknown]
  - Pain [Unknown]
  - Scratch [Unknown]
  - Feeling abnormal [Unknown]
  - Hypersensitivity [Not Recovered/Not Resolved]
  - Mouth swelling [Not Recovered/Not Resolved]
  - Drug hypersensitivity [Unknown]
  - Disturbance in attention [Unknown]
  - Skin haemorrhage [Unknown]
  - Eye swelling [Not Recovered/Not Resolved]
  - Product use in unapproved indication [Unknown]
